FAERS Safety Report 17848760 (Version 2)
Quarter: 2020Q3

REPORT INFORMATION
  Report Type: Spontaneous
  Country: GB (occurrence: GB)
  Receive Date: 20200602
  Receipt Date: 20200703
  Transmission Date: 20201103
  Serious: Yes (Hospitalization)
  Sender: FDA-Public Use
  Company Number: NVSC2020GB149867

PATIENT
  Age: 10 Year
  Sex: Male

DRUGS (5)
  1. FILGRASTIM [Suspect]
     Active Substance: FILGRASTIM
     Indication: INFANTILE GENETIC AGRANULOCYTOSIS
     Dosage: UNK
     Route: 065
  2. FLUDARABINE [Concomitant]
     Active Substance: FLUDARABINE PHOSPHATE
     Indication: PRODUCT USED FOR UNKNOWN INDICATION
     Dosage: UNK
     Route: 065
  3. MYCOPHENOLATE MOFETIL. [Suspect]
     Active Substance: MYCOPHENOLATE MOFETIL
     Indication: IMMUNOSUPPRESSION
     Dosage: UNK, DAY +5 TO +35
     Route: 065
  4. TACROLIMUS. [Suspect]
     Active Substance: TACROLIMUS
     Indication: IMMUNOSUPPRESSION
     Dosage: UNK, FROM DAY +7
     Route: 065
  5. CYCLOPHOSPHAMIDE. [Suspect]
     Active Substance: CYCLOPHOSPHAMIDE
     Indication: IMMUNOSUPPRESSION
     Dosage: 50 MG/KG ON DAYS +3 AND +4
     Route: 065

REACTIONS (12)
  - Intestinal mass [Recovering/Resolving]
  - Lymphopenia [Recovered/Resolved]
  - Intestinal obstruction [Recovering/Resolving]
  - Neutropenia [Recovered/Resolved]
  - C-reactive protein increased [Recovering/Resolving]
  - Graft versus host disease in skin [Recovering/Resolving]
  - Pain [Recovering/Resolving]
  - Weight decreased [Recovering/Resolving]
  - Crohn^s disease [Recovering/Resolving]
  - Product use in unapproved indication [Unknown]
  - Gene mutation [Unknown]
  - Neutropenic sepsis [Recovering/Resolving]
